FAERS Safety Report 9159679 (Version 3)
Quarter: 2013Q2

REPORT INFORMATION
  Report Type: Spontaneous
  Country: CH (occurrence: CH)
  Receive Date: 20130313
  Receipt Date: 20130509
  Transmission Date: 20140414
  Serious: Yes (Hospitalization, Other)
  Sender: FDA-Public Use
  Company Number: CH-BAYER-2013-028558

PATIENT
  Age: 59 Year
  Sex: Male
  Weight: 94 kg

DRUGS (13)
  1. NEXAVAR [Suspect]
     Indication: HEPATOCELLULAR CARCINOMA
     Dosage: 400 MG, BID
     Route: 048
     Dates: start: 20130223, end: 20130228
  2. NEXAVAR [Suspect]
     Indication: CHOLANGIOCARCINOMA
  3. INDERAL [Suspect]
     Dosage: 20 MG, QD
     Route: 048
  4. KCL [Concomitant]
     Indication: HYPOKALAEMIA
  5. GLUCOPHAGE [Concomitant]
     Indication: DIABETES MELLITUS
     Dosage: 500 MG, TID
     Route: 048
  6. SERETIDE [Concomitant]
     Indication: CHRONIC OBSTRUCTIVE PULMONARY DISEASE
     Dosage: 1 DF, BID
     Route: 048
  7. SPIRIVA [Concomitant]
     Indication: CHRONIC OBSTRUCTIVE PULMONARY DISEASE
     Dosage: UNK UNK, QD
  8. SPIRICORT [Concomitant]
     Indication: CHRONIC OBSTRUCTIVE PULMONARY DISEASE
     Dosage: 5 MG, QD
     Route: 048
  9. PANTOZOL [Concomitant]
  10. NOVORAPID [Concomitant]
  11. TOREM [Concomitant]
     Indication: OEDEMA
  12. IMPORTAL [Concomitant]
  13. ZESTRIL [Concomitant]
     Dosage: 2.5 MG, QD
     Route: 048

REACTIONS (3)
  - Hepatic encephalopathy [Recovering/Resolving]
  - Ammonia increased [None]
  - Somnolence [Recovered/Resolved]
